FAERS Safety Report 6850498-4 (Version None)
Quarter: 2010Q3

REPORT INFORMATION
  Report Type: 
  Country: None (occurrence: None)
  Receive Date: 20100716
  Receipt Date: 20071017
  Transmission Date: 20110219
  Serious: No
  Sender: FDA-Public Use
  Company Number: US-PFIZER INC-2007087679

PATIENT
  Sex: Female
  Weight: 47.2 kg

DRUGS (9)
  1. CHANTIX [Suspect]
     Indication: SMOKING CESSATION THERAPY
     Dates: start: 20071008
  2. SPIRIVA [Concomitant]
  3. COMBIVENT [Concomitant]
  4. SEREVENT [Concomitant]
  5. MONTELUKAST SODIUM [Concomitant]
  6. MIACALCIN [Concomitant]
     Indication: OSTEOPOROSIS
  7. HYDROCODONE [Concomitant]
  8. ACETYLSALICYLIC ACID [Concomitant]
  9. MACROGOL [Concomitant]

REACTIONS (2)
  - NAUSEA [None]
  - VOMITING [None]
